FAERS Safety Report 12275357 (Version 2)
Quarter: 2016Q2

REPORT INFORMATION
  Report Type: Spontaneous
  Country: US (occurrence: US)
  Receive Date: 20160415
  Receipt Date: 20160512
  Transmission Date: 20160815
  Serious: No
  Sender: FDA-Public Use
  Company Number: US-UCBSA-2015029960

PATIENT
  Age: 54 Year
  Sex: Female
  Weight: 75 kg

DRUGS (4)
  1. NEUPRO [Suspect]
     Active Substance: ROTIGOTINE
     Dosage: 4 MG, STARTED AFTER 1 WEEK OF 2 MG DOSE
     Dates: start: 2015, end: 2015
  2. NEUPRO [Suspect]
     Active Substance: ROTIGOTINE
     Dosage: 6 MG/ 24 HR, (ONCE DAILY (QD))
     Dates: start: 20150911
  3. AZILECT [Concomitant]
     Active Substance: RASAGILINE MESYLATE
     Indication: PRODUCT USED FOR UNKNOWN INDICATION
     Dosage: UNKNOWN
  4. NEUPRO [Suspect]
     Active Substance: ROTIGOTINE
     Indication: PRODUCT USED FOR UNKNOWN INDICATION
     Dosage: 2 MG, UNK
     Dates: start: 201507, end: 2015

REACTIONS (2)
  - Somnolence [Not Recovered/Not Resolved]
  - Drug ineffective [Unknown]

NARRATIVE: CASE EVENT DATE: 201507
